FAERS Safety Report 14096148 (Version 1)
Quarter: 2017Q4

REPORT INFORMATION
  Report Type: Report from Study
  Country: IL (occurrence: IL)
  Receive Date: 20171017
  Receipt Date: 20171017
  Transmission Date: 20180321
  Serious: Yes (Hospitalization)
  Sender: FDA-Public Use
  Company Number: IL-ASTRAZENECA-2017SF05208

PATIENT
  Age: 26843 Day
  Sex: Female

DRUGS (1)
  1. AZD2281 [Suspect]
     Active Substance: OLAPARIB
     Indication: NEOPLASM MALIGNANT
     Route: 048

REACTIONS (1)
  - Intestinal obstruction [Unknown]

NARRATIVE: CASE EVENT DATE: 20171009
